FAERS Safety Report 20431413 (Version 1)
Quarter: 2022Q1

REPORT INFORMATION
  Report Type: Spontaneous
  Country: US (occurrence: None)
  Receive Date: 20220204
  Receipt Date: 20220204
  Transmission Date: 20220424
  Serious: No
  Sender: FDA-Public Use
  Company Number: 2022A047016

PATIENT
  Sex: Female
  Weight: 86.2 kg

DRUGS (1)
  1. TAGRISSO [Suspect]
     Active Substance: OSIMERTINIB
     Indication: Lung neoplasm malignant
     Route: 048

REACTIONS (4)
  - General physical health deterioration [Unknown]
  - Discomfort [Unknown]
  - Anxiety [Unknown]
  - Product dose omission issue [Unknown]
